FAERS Safety Report 18435667 (Version 5)
Quarter: 2021Q3

REPORT INFORMATION
  Report Type: Spontaneous
  Country: US (occurrence: US)
  Receive Date: 20201028
  Receipt Date: 20210802
  Transmission Date: 20211014
  Serious: Yes (Other)
  Sender: FDA-Public Use
  Company Number: US-BAYER-2020-226147

PATIENT
  Age: 50 Year
  Sex: Male

DRUGS (6)
  1. KOGENATE FS [Suspect]
     Active Substance: ANTIHEMOPHILIC FACTOR, HUMAN RECOMBINANT
     Dosage: 2090 UN; PROPHYLAXIS
     Route: 042
  2. KOGENATE FS [Suspect]
     Active Substance: ANTIHEMOPHILIC FACTOR, HUMAN RECOMBINANT
     Dosage: 1 DF, ONCE, TREATMENT FOR BLEEDING
     Dates: start: 20210130
  3. KOGENATE FS [Suspect]
     Active Substance: ANTIHEMOPHILIC FACTOR, HUMAN RECOMBINANT
     Dosage: 2300 UN IV; TREATMENT FOR ELBOW AND FOREARM HEMARTHROSIS
     Route: 042
  4. KOGENATE FS [Suspect]
     Active Substance: ANTIHEMOPHILIC FACTOR, HUMAN RECOMBINANT
     Dosage: 3 DF, ONCE, TREATMENT FOR BLEEDING
     Dates: start: 20210119
  5. KOGENATE FS [Suspect]
     Active Substance: ANTIHEMOPHILIC FACTOR, HUMAN RECOMBINANT
     Dosage: 2300 IU AT UNKNOWN FREQUENCY
     Route: 042
  6. KOGENATE FS [Suspect]
     Active Substance: ANTIHEMOPHILIC FACTOR, HUMAN RECOMBINANT
     Dosage: 1 DF, ONCE, TREATMENT FOR BLEEDING
     Dates: start: 20210201

REACTIONS (12)
  - Pain [Recovered/Resolved]
  - Haemorrhage [Recovered/Resolved]
  - Haemarthrosis [Recovered/Resolved]
  - Cough [Recovered/Resolved]
  - Ageusia [Recovered/Resolved]
  - Back pain [Recovered/Resolved]
  - Haemarthrosis [Recovered/Resolved]
  - Product dose omission issue [None]
  - COVID-19 [Recovered/Resolved]
  - Pyrexia [Recovered/Resolved]
  - Haemarthrosis [Recovered/Resolved]
  - Haemorrhage [Recovered/Resolved]

NARRATIVE: CASE EVENT DATE: 20201005
